FAERS Safety Report 21676021 (Version 1)
Quarter: 2022Q4

REPORT INFORMATION
  Report Type: Spontaneous
  Country: AU (occurrence: AU)
  Receive Date: 20221202
  Receipt Date: 20221202
  Transmission Date: 20230113
  Serious: Yes (Hospitalization)
  Sender: FDA-Public Use
  Company Number: AU-TASMAN PHARMA, INC.-2022TSM00577

PATIENT
  Sex: Male

DRUGS (23)
  1. CLOZAPINE [Suspect]
     Active Substance: CLOZAPINE
     Dosage: 25 MG
     Dates: start: 20150526, end: 20150531
  2. CLOZAPINE [Suspect]
     Active Substance: CLOZAPINE
     Dosage: 25 MG
     Dates: start: 20150623, end: 20150629
  3. CLOZAPINE [Suspect]
     Active Substance: CLOZAPINE
     Dosage: 75 MG
     Dates: start: 20150714, end: 20150719
  4. CLOZAPINE [Suspect]
     Active Substance: CLOZAPINE
     Dosage: 100 MG
     Dates: start: 20150729, end: 20150803
  5. CLOZAPINE [Suspect]
     Active Substance: CLOZAPINE
     Dosage: 125 MG
     Dates: start: 20150804, end: 20150809
  6. CLOZAPINE [Suspect]
     Active Substance: CLOZAPINE
     Dosage: 175 MG
     Dates: start: 20150818, end: 20150824
  7. CLOZAPINE [Suspect]
     Active Substance: CLOZAPINE
     Dosage: 250 MG
     Dates: start: 20150825, end: 20150831
  8. CLOZAPINE [Suspect]
     Active Substance: CLOZAPINE
     Dosage: 300 MG
     Dates: start: 20150901, end: 20150907
  9. CLOZAPINE [Suspect]
     Active Substance: CLOZAPINE
     Dosage: 325 MG
     Dates: start: 20150908, end: 20151012
  10. CLOZAPINE [Suspect]
     Active Substance: CLOZAPINE
     Dosage: 350 MG
     Dates: start: 20151013, end: 20151109
  11. CLOZAPINE [Suspect]
     Active Substance: CLOZAPINE
     Dosage: 400 MG
     Dates: start: 20151110, end: 20151207
  12. CLOZAPINE [Suspect]
     Active Substance: CLOZAPINE
     Dosage: 425 MG
     Dates: start: 20151208, end: 20160105
  13. CLOZAPINE [Suspect]
     Active Substance: CLOZAPINE
     Dosage: 475 MG
     Dates: start: 20160106, end: 20160606
  14. CLOZAPINE [Suspect]
     Active Substance: CLOZAPINE
     Dosage: 550 MG
     Dates: start: 20160607, end: 20160704
  15. CLOZAPINE [Suspect]
     Active Substance: CLOZAPINE
     Dosage: 600 MG
     Dates: start: 20160705, end: 20160926
  16. CLOZAPINE [Suspect]
     Active Substance: CLOZAPINE
     Dosage: 350 MG
     Dates: start: 20160927, end: 20161003
  17. CLOZAPINE [Suspect]
     Active Substance: CLOZAPINE
     Dosage: 25 MG
     Dates: start: 20150601, end: 20150608
  18. CLOZAPINE [Suspect]
     Active Substance: CLOZAPINE
     Dosage: 75 MG
     Dates: start: 20150720, end: 20150728
  19. CLOZAPINE [Suspect]
     Active Substance: CLOZAPINE
     Dosage: 175 MG
     Dates: start: 20150810, end: 20150817
  20. CLOZAPINE [Suspect]
     Active Substance: CLOZAPINE
     Dosage: RECOMMENCED
     Dates: start: 20221117
  21. CLOZAPINE [Suspect]
     Active Substance: CLOZAPINE
     Dosage: 25 MG
     Dates: start: 20150609, end: 20150622
  22. CLOZAPINE [Suspect]
     Active Substance: CLOZAPINE
     Dosage: 25 MG
     Dates: start: 20150630, end: 20150706
  23. CLOZAPINE [Suspect]
     Active Substance: CLOZAPINE
     Dosage: 50 MG
     Dates: start: 20150707, end: 20150713

REACTIONS (5)
  - Hospitalisation [Unknown]
  - Speech disorder [Unknown]
  - Treatment noncompliance [Recovered/Resolved]
  - Myoclonus [Unknown]
  - Unevaluable event [Unknown]

NARRATIVE: CASE EVENT DATE: 20160310
